FAERS Safety Report 12441608 (Version 1)
Quarter: 2016Q2

REPORT INFORMATION
  Report Type: Spontaneous
  Country: US (occurrence: None)
  Receive Date: 20160606
  Receipt Date: 20160606
  Transmission Date: 20160815
  Serious: No
  Sender: FDA-Public Use
  Company Number: None

PATIENT
  Age: 79 Year
  Sex: Male

DRUGS (15)
  1. CAPECITABINE 500 MG [Suspect]
     Active Substance: CAPECITABINE
     Indication: GASTRIC CANCER
     Route: 048
     Dates: start: 20160510
  2. ELIQUIS [Concomitant]
     Active Substance: APIXABAN
  3. FERROUS SULFATE. [Concomitant]
     Active Substance: FERROUS SULFATE
  4. ASPIRIN. [Concomitant]
     Active Substance: ASPIRIN
  5. PROTONIX [Concomitant]
     Active Substance: PANTOPRAZOLE SODIUM
  6. VIT. D3 [Concomitant]
  7. DOCUSATE [Concomitant]
     Active Substance: DOCUSATE
  8. COQ10 [Concomitant]
     Active Substance: UBIDECARENONE
  9. LIPITOR [Concomitant]
     Active Substance: ATORVASTATIN CALCIUM
  10. ADVAIR HFA [Concomitant]
     Active Substance: FLUTICASONE PROPIONATE\SALMETEROL XINAFOATE
  11. LASIX [Concomitant]
     Active Substance: FUROSEMIDE
  12. PRESERVISION [Concomitant]
     Active Substance: MINERALS\VITAMINS
  13. COREG [Concomitant]
     Active Substance: CARVEDILOL
  14. VENTOLIN [Concomitant]
     Active Substance: ALBUTEROL SULFATE
  15. K-TAB [Concomitant]
     Active Substance: POTASSIUM CHLORIDE

REACTIONS (3)
  - Vomiting [None]
  - Dehydration [None]
  - Nausea [None]

NARRATIVE: CASE EVENT DATE: 20160529
